FAERS Safety Report 5934563-1 (Version None)
Quarter: 2008Q4

REPORT INFORMATION
  Report Type: 
  Country: None (occurrence: None)
  Receive Date: 20081029
  Receipt Date: 20081017
  Transmission Date: 20090506
  Serious: Yes (Other)
  Sender: FDA-Public Use
  Company Number: DE-PFIZER INC-2008087911

PATIENT
  Age: 49 Year
  Sex: Male

DRUGS (1)
  1. UNACID INJECTION [Suspect]
     Dates: start: 20080301

REACTIONS (1)
  - DEPRESSION [None]
